FAERS Safety Report 9140022 (Version 1)
Quarter: 2013Q1

REPORT INFORMATION
  Report Type: Spontaneous
  Country: JP (occurrence: JP)
  Receive Date: 20130305
  Receipt Date: 20130305
  Transmission Date: 20140127
  Serious: Yes (Hospitalization)
  Sender: FDA-Public Use
  Company Number: JP-PFIZER INC-2012328417

PATIENT
  Age: 57 Year
  Sex: Male
  Weight: 56 kg

DRUGS (1)
  1. CHAMPIX [Suspect]
     Dosage: 1 MG, 2X/DAY
     Route: 048
     Dates: start: 20121027, end: 20121221

REACTIONS (1)
  - Prinzmetal angina [Recovering/Resolving]
